FAERS Safety Report 9670242 (Version 3)
Quarter: 2014Q3

REPORT INFORMATION
  Report Type: Report from Study
  Country: US (occurrence: US)
  Receive Date: 20131105
  Receipt Date: 20140905
  Transmission Date: 20150326
  Serious: Yes (Other)
  Sender: FDA-Public Use
  Company Number: US-MPIJNJ-2013MPI000780

PATIENT
  Age: 81 Year
  Sex: Male

DRUGS (1)
  1. VELCADE [Suspect]
     Active Substance: BORTEZOMIB
     Indication: PLASMA CELL MYELOMA
     Dosage: 1.3 MG/M2, WEEKLY DAYS 1, 8, 15 Q 28 DAYS
     Route: 058
     Dates: start: 20130312, end: 20130312

REACTIONS (2)
  - Renal failure [Unknown]
  - Arteriovenous graft [Recovered/Resolved]

NARRATIVE: CASE EVENT DATE: 20130819
